FAERS Safety Report 15714572 (Version 1)
Quarter: 2018Q4

REPORT INFORMATION
  Report Type: Spontaneous
  Country: US (occurrence: US)
  Receive Date: 20181212
  Receipt Date: 20181212
  Transmission Date: 20190205
  Serious: No
  Sender: FDA-Public Use
  Company Number: None

PATIENT
  Age: 52 Year
  Sex: Female
  Weight: 67.05 kg

DRUGS (14)
  1. XIIDRA [Concomitant]
     Active Substance: LIFITEGRAST
  2. MELATONIN [Concomitant]
     Active Substance: MELATONIN
  3. SYSTANE (HYPROMELLOSE 2910 (4000 MPA.S)) [Concomitant]
     Active Substance: HYPROMELLOSE 2910 (4000 MPA.S)
  4. LATISSE [Concomitant]
     Active Substance: BIMATOPROST
  5. ESTRADIOL. [Suspect]
     Active Substance: ESTRADIOL
     Indication: NIGHT SWEATS
     Dosage: ?          QUANTITY:1 PATCH(ES);OTHER FREQUENCY:WEEKLY;?
     Route: 062
     Dates: start: 20181031, end: 20181121
  6. RETIN-A [Concomitant]
     Active Substance: TRETINOIN
  7. ESTRADIOL. [Suspect]
     Active Substance: ESTRADIOL
     Indication: MENOPAUSE
     Dosage: ?          QUANTITY:1 PATCH(ES);OTHER FREQUENCY:WEEKLY;?
     Route: 062
     Dates: start: 20181031, end: 20181121
  8. MULTIVITAMIN [Concomitant]
     Active Substance: VITAMINS
  9. FISH OIL [Concomitant]
     Active Substance: FISH OIL
  10. VITAMIN D3 [Concomitant]
     Active Substance: CHOLECALCIFEROL
  11. FLAXSEED [Concomitant]
     Active Substance: FLAX SEED
  12. ESTROGEN PATCH [Concomitant]
     Active Substance: ESTRADIOL
  13. TUMERIC [Concomitant]
     Active Substance: HERBALS\TURMERIC
  14. IRON [Concomitant]
     Active Substance: IRON

REACTIONS (5)
  - Product substitution issue [None]
  - Application site irritation [None]
  - Application site pruritus [None]
  - Application site erosion [None]
  - Application site erythema [None]

NARRATIVE: CASE EVENT DATE: 20181102
